FAERS Safety Report 8602212-X (Version None)
Quarter: 2012Q3

REPORT INFORMATION
  Report Type: 
  Country: None (occurrence: None)
  Receive Date: 20120817
  Receipt Date: 20120807
  Transmission Date: 20120928
  Serious: Yes (Hospitalization)
  Sender: FDA-Public Use
  Company Number: US-PFIZER INC-2012160319

PATIENT
  Age: 54 Year
  Sex: Female

DRUGS (4)
  1. MS CONTIN [Suspect]
     Dosage: 60 MG, UNK
     Route: 048
     Dates: start: 20120109, end: 20120501
  2. MS CONTIN [Suspect]
     Dosage: 15 MG, UNK
     Route: 048
     Dates: start: 20111107, end: 20120501
  3. ESGIC-PLUS [Concomitant]
     Dosage: UNK
     Dates: start: 20090101
  4. TRAZODONE [Concomitant]
     Dosage: UNK
     Dates: start: 20120101

REACTIONS (2)
  - TINNITUS [None]
  - DEAFNESS [None]
